FAERS Safety Report 20111181 (Version 1)
Quarter: 2021Q4

REPORT INFORMATION
  Report Type: Spontaneous
  Country: FR (occurrence: FR)
  Receive Date: 20211125
  Receipt Date: 20211125
  Transmission Date: 20220303
  Serious: Yes (Hospitalization)
  Sender: FDA-Public Use
  Company Number: FR-AFSSAPS-AVCN20211581

PATIENT
  Age: 53 Year
  Sex: Female

DRUGS (1)
  1. PAROXETINE [Suspect]
     Active Substance: PAROXETINE
     Indication: Product used for unknown indication
     Dosage: 10 MILLIGRAM, DAILY
     Route: 048

REACTIONS (2)
  - Antidepressant discontinuation syndrome [Recovered/Resolved]
  - Drug dependence [Recovering/Resolving]

NARRATIVE: CASE EVENT DATE: 20190520
